FAERS Safety Report 9392099 (Version 3)
Quarter: 2013Q3

REPORT INFORMATION
  Report Type: Spontaneous
  Country: US (occurrence: US)
  Receive Date: 20130709
  Receipt Date: 20130731
  Transmission Date: 20140515
  Serious: Yes (Death, Hospitalization)
  Sender: FDA-Public Use
  Company Number: US-GILEAD-2013-0078756

PATIENT
  Age: 69 Year
  Sex: Female

DRUGS (5)
  1. LETAIRIS [Suspect]
     Indication: PULMONARY HYPERTENSION
     Dosage: 10 MG, QD
     Route: 048
     Dates: start: 20100224
  2. LETAIRIS [Suspect]
     Indication: HEART DISEASE CONGENITAL
  3. LETAIRIS [Suspect]
     Indication: UNEVALUABLE EVENT
  4. WARFARIN [Concomitant]
  5. REVATIO [Concomitant]

REACTIONS (4)
  - Multi-organ failure [Fatal]
  - Ventricular fibrillation [Fatal]
  - Cardiac arrest [Fatal]
  - Myocardial infarction [Not Recovered/Not Resolved]
